FAERS Safety Report 18320470 (Version 1)
Quarter: 2020Q3

REPORT INFORMATION
  Report Type: Spontaneous
  Country: DE (occurrence: DE)
  Receive Date: 20200928
  Receipt Date: 20200928
  Transmission Date: 20201103
  Serious: Yes (Other)
  Sender: FDA-Public Use
  Company Number: NVSC2020DE257384

PATIENT
  Age: 56 Year
  Sex: Male
  Weight: 110 kg

DRUGS (1)
  1. CIPROHEXAL 500 FILMCOATED TABLETS [Suspect]
     Active Substance: CIPROFLOXACIN HYDROCHLORIDE
     Indication: DIVERTICULITIS
     Dosage: 500 MG, Q12H (1?0?1)
     Route: 048
     Dates: start: 20200830, end: 20200905

REACTIONS (6)
  - Vertigo [Recovered/Resolved]
  - Fatigue [Not Recovered/Not Resolved]
  - Circulatory collapse [Recovered/Resolved]
  - Dizziness [Not Recovered/Not Resolved]
  - Somnolence [Not Recovered/Not Resolved]
  - Nausea [Recovered/Resolved]

NARRATIVE: CASE EVENT DATE: 20200830
